FAERS Safety Report 17816839 (Version 1)
Quarter: 2020Q2

REPORT INFORMATION
  Report Type: Report from Study
  Country: DE (occurrence: DE)
  Receive Date: 20200522
  Receipt Date: 20200522
  Transmission Date: 20200714
  Serious: Yes (Hospitalization, Other)
  Sender: FDA-Public Use
  Company Number: DE-TAKEDA-2020TUS023248

PATIENT
  Age: 79 Year
  Sex: Male

DRUGS (10)
  1. REVLIMID [Suspect]
     Active Substance: LENALIDOMIDE
     Dosage: 25 MILLIGRAM, QD
     Route: 048
     Dates: start: 20181224, end: 20190113
  2. BORTEZOMIB. [Suspect]
     Active Substance: BORTEZOMIB
     Indication: PLASMA CELL MYELOMA
     Dosage: 2.4 MILLIGRAM
     Route: 058
     Dates: start: 20181024, end: 20181024
  3. REVLIMID [Suspect]
     Active Substance: LENALIDOMIDE
     Dosage: 25 MILLIGRAM, QD
     Route: 048
     Dates: start: 20181029, end: 20181118
  4. ASA [Concomitant]
     Active Substance: ASPIRIN
     Indication: CORONARY ARTERY DISEASE
     Dosage: 100 MILLIGRAM, QD
     Route: 065
     Dates: start: 20200429
  5. DEXAMETHASONE. [Suspect]
     Active Substance: DEXAMETHASONE
     Indication: PLASMA CELL MYELOMA
     Dosage: 20 MILLIGRAM, 1/WEEK
     Route: 048
     Dates: start: 20181024, end: 20181028
  6. BISOPROLOL [Concomitant]
     Active Substance: BISOPROLOL
     Indication: HYPERTENSION
     Dosage: 5 MILLIGRAM, QD
     Route: 065
     Dates: start: 2011
  7. ASA [Concomitant]
     Active Substance: ASPIRIN
     Indication: COAGULOPATHY
     Dosage: UNK UNK, QD
     Route: 065
  8. REVLIMID [Suspect]
     Active Substance: LENALIDOMIDE
     Indication: PLASMA CELL MYELOMA
     Dosage: 25 MILLIGRAM
     Route: 048
     Dates: start: 20181126, end: 20181216
  9. LERCANIDIPINE [Concomitant]
     Active Substance: LERCANIDIPINE
     Indication: HYPERTENSION
     Dosage: 10 MILLIGRAM, QD
     Route: 065
     Dates: start: 2011
  10. DEXAMETHASONE. [Suspect]
     Active Substance: DEXAMETHASONE
     Dosage: 40 MILLIGRAM, 1/WEEK
     Route: 048
     Dates: start: 20181029, end: 20190120

REACTIONS (1)
  - Myocardial infarction [Recovered/Resolved]

NARRATIVE: CASE EVENT DATE: 20200428
